FAERS Safety Report 8208592-1 (Version None)
Quarter: 2012Q1

REPORT INFORMATION
  Report Type: 
  Country: None (occurrence: None)
  Receive Date: 20120314
  Receipt Date: 20120309
  Transmission Date: 20120608
  Serious: Yes (Hospitalization)
  Sender: FDA-Public Use
  Company Number: JP-GLAXOSMITHKLINE-B0782482A

PATIENT
  Sex: Female
  Weight: 43 kg

DRUGS (7)
  1. VALTREX [Suspect]
     Indication: HERPES ZOSTER
     Dosage: 3000MG PER DAY
     Route: 048
     Dates: start: 20120209, end: 20120215
  2. MUCOSTA [Concomitant]
     Route: 048
     Dates: start: 20120209
  3. ARASENA-A [Concomitant]
     Indication: HERPES ZOSTER
     Route: 061
     Dates: start: 20120209, end: 20120215
  4. DEZOLAM [Concomitant]
     Indication: INSOMNIA
     Route: 048
  5. RINGEREAZE [Concomitant]
     Indication: PAIN
     Route: 048
     Dates: start: 20120209
  6. NIFESLOW [Concomitant]
     Indication: HYPERTENSION
     Route: 048
  7. RONFLEMAN [Concomitant]
     Indication: INSOMNIA
     Route: 048

REACTIONS (7)
  - DIZZINESS POSTURAL [None]
  - RENAL FAILURE ACUTE [None]
  - BLOOD UREA INCREASED [None]
  - ASTHENIA [None]
  - GAIT DISTURBANCE [None]
  - GLOMERULAR FILTRATION RATE DECREASED [None]
  - BLOOD CREATININE INCREASED [None]
